FAERS Safety Report 11012455 (Version 1)
Quarter: 2015Q2

REPORT INFORMATION
  Report Type: Spontaneous
  Country: US (occurrence: None)
  Receive Date: 20150410
  Receipt Date: 20150410
  Transmission Date: 20150821
  Serious: No
  Sender: FDA-Public Use
  Company Number: None

PATIENT
  Age: 64 Year
  Sex: Male
  Weight: 68.04 kg

DRUGS (5)
  1. PREDNISOLONE ACETATE. [Suspect]
     Active Substance: PREDNISOLONE ACETATE
     Indication: CATARACT OPERATION
     Route: 047
  2. METHOTREXATE [Concomitant]
     Active Substance: METHOTREXATE
  3. THYROXIN [Concomitant]
     Active Substance: LEVOTHYROXINE
  4. HYDROXYCHLOROQUIN [Concomitant]
  5. FOLIC ACID. [Concomitant]
     Active Substance: FOLIC ACID

REACTIONS (1)
  - Device failure [None]
